FAERS Safety Report 21511092 (Version 1)
Quarter: 2022Q4

REPORT INFORMATION
  Report Type: Spontaneous
  Country: US (occurrence: US)
  Receive Date: 20221027
  Receipt Date: 20221027
  Transmission Date: 20230113
  Serious: No
  Sender: FDA-Public Use
  Company Number: ENDG22-01525

PATIENT
  Sex: Male

DRUGS (2)
  1. AMITRIPTYLINE HYDROCHLORIDE [Suspect]
     Active Substance: AMITRIPTYLINE HYDROCHLORIDE
     Indication: Headache
     Dosage: UNK UNKNOWN, UNKNOWN (LOW DOSES)
     Route: 065
  2. ALEVE [Concomitant]
     Active Substance: NAPROXEN SODIUM
     Indication: Headache
     Dosage: UNK UNKNOWN, UNKNOWN (EXTRA STRENGTH)
     Route: 065

REACTIONS (3)
  - Drug ineffective [Unknown]
  - Off label use [Recovered/Resolved]
  - Ill-defined disorder [Unknown]
